FAERS Safety Report 5767299-0 (Version None)
Quarter: 2008Q2

REPORT INFORMATION
  Report Type: 
  Country: None (occurrence: None)
  Receive Date: 20080611
  Receipt Date: 20080611
  Transmission Date: 20081010
  Serious: Yes (Other)
  Sender: FDA-Public Use
  Company Number: None

PATIENT
  Age: 26 Year
  Sex: Female
  Weight: 68.0396 kg

DRUGS (1)
  1. YAZ [Suspect]
     Indication: CONTRACEPTION
     Dosage: 1 EVERYDAY EVERY MONTH
     Dates: start: 20080601, end: 20080610

REACTIONS (3)
  - ARTHROPOD BITE [None]
  - RASH [None]
  - RASH PRURITIC [None]
